FAERS Safety Report 4546339-0 (Version None)
Quarter: 2005Q1

REPORT INFORMATION
  Report Type: 
  Country: None (occurrence: None)
  Receive Date: 20050103
  Receipt Date: 20041223
  Transmission Date: 20050727
  Serious: Yes (Death, Other)
  Sender: FDA-Public Use
  Company Number: 002-0981-M0000242

PATIENT
  Age: 61 Year
  Sex: Male
  Weight: 102 kg

DRUGS (7)
  1. ATORVASTATIN (ATORVASTATIN) [Suspect]
     Indication: CORONARY ARTERY DISEASE
     Dosage: SEE IMAGE
     Route: 048
     Dates: start: 19990713, end: 19990913
  2. ATORVASTATIN (ATORVASTATIN) [Suspect]
     Indication: CORONARY ARTERY DISEASE
     Dosage: SEE IMAGE
     Route: 048
     Dates: start: 19990914, end: 20040127
  3. METOPROLOL TARTRATE [Concomitant]
  4. ASPIRIN [Concomitant]
  5. TOCOPHEROL CONCENTRATE CAP [Concomitant]
  6. LORAZEPAM [Concomitant]
  7. ISOSORBIDE DINITRATE [Concomitant]

REACTIONS (10)
  - ANGINA UNSTABLE [None]
  - CARCINOMA IN SITU OF EYE [None]
  - DYSPHAGIA [None]
  - GASTROOESOPHAGEAL REFLUX DISEASE [None]
  - MALIGNANT MELANOMA [None]
  - METASTASES TO LIVER [None]
  - METASTASES TO LUNG [None]
  - NAUSEA [None]
  - PAIN [None]
  - VISION BLURRED [None]
